FAERS Safety Report 5622888-9 (Version None)
Quarter: 2008Q1

REPORT INFORMATION
  Report Type: 
  Country: None (occurrence: None)
  Receive Date: 20080207
  Receipt Date: 20080207
  Transmission Date: 20080703
  Serious: No
  Sender: FDA-Public Use
  Company Number: None

PATIENT
  Age: 42 Year
  Sex: Female

DRUGS (1)
  1. RIFAMPIN [Suspect]
     Dates: start: 20050814, end: 20050818

REACTIONS (2)
  - JAUNDICE [None]
  - LIVER INJURY [None]
